FAERS Safety Report 10884733 (Version 1)
Quarter: 2015Q1

REPORT INFORMATION
  Report Type: Spontaneous
  Country: US (occurrence: None)
  Receive Date: 20150227
  Receipt Date: 20150227
  Transmission Date: 20150721
  Serious: Yes (Other)
  Sender: FDA-Public Use
  Company Number: None

PATIENT
  Age: 56 Year
  Sex: Female
  Weight: 58.51 kg

DRUGS (1)
  1. LOPRESSOR [Suspect]
     Active Substance: METOPROLOL TARTRATE
     Indication: HYPERTENSION
     Route: 048

REACTIONS (4)
  - Product quality issue [None]
  - Back pain [None]
  - Hypertension [None]
  - Product substitution issue [None]
